FAERS Safety Report 7907208-9 (Version None)
Quarter: 2011Q4

REPORT INFORMATION
  Report Type: 
  Country: None (occurrence: None)
  Receive Date: 20111110
  Receipt Date: 20111107
  Transmission Date: 20120403
  Serious: Yes (Other)
  Sender: FDA-Public Use
  Company Number: US-JNJFOC-20110402168

PATIENT
  Sex: Male
  Weight: 14.2 kg

DRUGS (1)
  1. CHILDREN'S TYLENOL PLUS MULTI-SYMPTOM COLD [Suspect]
     Indication: PYREXIA
     Route: 048
     Dates: start: 20091208, end: 20091208

REACTIONS (3)
  - CONVULSION [None]
  - WRONG DRUG ADMINISTERED [None]
  - PRODUCT QUALITY ISSUE [None]
